FAERS Safety Report 7605978-0 (Version None)
Quarter: 2011Q3

REPORT INFORMATION
  Report Type: 
  Country: None (occurrence: None)
  Receive Date: 20110713
  Receipt Date: 20110629
  Transmission Date: 20111222
  Serious: Yes (Hospitalization)
  Sender: FDA-Public Use
  Company Number: PHHY2010MX53875

PATIENT
  Sex: Male

DRUGS (1)
  1. DIOVAN HCT [Suspect]
     Indication: HYPERTENSION
     Dosage: 1 DF, 80 MG VALS AND 12.5 MG HYDR
     Dates: start: 20090301, end: 20110301

REACTIONS (4)
  - CARDIOMEGALY [None]
  - PROSTATIC DISORDER [None]
  - HYPERTENSION [None]
  - HEADACHE [None]
